FAERS Safety Report 7260728-5 (Version None)
Quarter: 2011Q1

REPORT INFORMATION
  Report Type: 
  Country: None (occurrence: None)
  Receive Date: 20110130
  Receipt Date: 20101220
  Transmission Date: 20110831
  Serious: Yes (Other)
  Sender: FDA-Public Use
  Company Number: US-ABBOTT-10P-163-0693424-00

PATIENT
  Age: 64 Year
  Sex: Male

DRUGS (8)
  1. HUMIRA [Suspect]
     Indication: PSORIATIC ARTHROPATHY
     Route: 058
     Dates: start: 20081201
  2. CRESTOR [Concomitant]
     Indication: BLOOD CHOLESTEROL INCREASED
  3. ZITHROMAX [Suspect]
     Indication: RASH
     Dates: start: 20100601, end: 20100601
  4. ALLOPURINOL [Concomitant]
     Indication: BLOOD URIC ACID INCREASED
  5. LISINOPRIL [Concomitant]
     Indication: HYPERTENSION
  6. SPIRIVA [Concomitant]
     Indication: CHRONIC OBSTRUCTIVE PULMONARY DISEASE
  7. RELAFEN [Concomitant]
     Indication: ARTHRITIS
  8. PREDNISONE [Concomitant]
     Indication: CHRONIC OBSTRUCTIVE PULMONARY DISEASE

REACTIONS (6)
  - EXCORIATION [None]
  - SQUAMOUS CELL CARCINOMA OF SKIN [None]
  - RASH [None]
  - VOMITING [None]
  - PRURITUS [None]
  - NAUSEA [None]
